FAERS Safety Report 6019816-3 (Version None)
Quarter: 2008Q4

REPORT INFORMATION
  Report Type: 
  Country: None (occurrence: None)
  Receive Date: 20081224
  Receipt Date: 20081219
  Transmission Date: 20090506
  Serious: Yes (Other)
  Sender: FDA-Public Use
  Company Number: US-B.I. PHARMACEUTICALS,INC./RIDGEFIELD-2008-BP-18960BP

PATIENT
  Sex: Female

DRUGS (3)
  1. SPIRIVA [Suspect]
     Indication: EMPHYSEMA
     Dates: start: 20041201
  2. ALBUTEROL SULFATE [Concomitant]
     Indication: DYSPNOEA
  3. ATROVENT HFA [Concomitant]
     Indication: DYSPNOEA

REACTIONS (1)
  - GLAUCOMA [None]
